FAERS Safety Report 10368076 (Version 1)
Quarter: 2014Q3

REPORT INFORMATION
  Report Type: Spontaneous
  Country: AT (occurrence: AT)
  Receive Date: 20140807
  Receipt Date: 20140807
  Transmission Date: 20150326
  Serious: Yes (Hospitalization)
  Sender: FDA-Public Use
  Company Number: AT-SA-2014SA103304

PATIENT
  Sex: Male

DRUGS (3)
  1. DOCETAXEL [Suspect]
     Active Substance: DOCETAXEL
     Indication: PROSTATE CANCER METASTATIC
     Route: 065
     Dates: start: 201003, end: 201006
  2. FLUOROURACIL. [Suspect]
     Active Substance: FLUOROURACIL
     Indication: PROSTATE CANCER METASTATIC
     Route: 065
     Dates: start: 200712, end: 200801
  3. OXALIPLATIN. [Suspect]
     Active Substance: OXALIPLATIN
     Indication: PROSTATE CANCER METASTATIC
     Route: 065
     Dates: start: 200712, end: 200801

REACTIONS (4)
  - Prostatic specific antigen increased [Unknown]
  - Toxicity to various agents [Unknown]
  - Prostate cancer [Unknown]
  - Off label use [Unknown]

NARRATIVE: CASE EVENT DATE: 2010
